FAERS Safety Report 10877703 (Version 1)
Quarter: 2015Q1

REPORT INFORMATION
  Report Type: Report from Study
  Country: US (occurrence: US)
  Receive Date: 20150302
  Receipt Date: 20150302
  Transmission Date: 20150721
  Serious: No
  Sender: FDA-Public Use
  Company Number: US-CELGENEUS-USA-2015023561

PATIENT
  Age: 45 Year
  Sex: Female
  Weight: 62.2 kg

DRUGS (4)
  1. CLOBETASOL PROPIONATE. [Concomitant]
     Active Substance: CLOBETASOL PROPIONATE
     Route: 065
  2. AUGMENTED BETAMETHASONE [Concomitant]
     Route: 065
  3. OTEZLA [Suspect]
     Active Substance: APREMILAST
     Indication: PSORIATIC ARTHROPATHY
     Dosage: 60 MILLIGRAM
     Route: 048
  4. STELARA [Concomitant]
     Active Substance: USTEKINUMAB
     Route: 065

REACTIONS (2)
  - Diarrhoea [Unknown]
  - Vomiting [Unknown]
